FAERS Safety Report 24324036 (Version 1)
Quarter: 2024Q3

REPORT INFORMATION
  Report Type: Spontaneous
  Country: US (occurrence: US)
  Receive Date: 20240916
  Receipt Date: 20240916
  Transmission Date: 20241017
  Serious: Yes (Other)
  Sender: ARGENX BVBA
  Company Number: US-ARGENX-2024-ARGX-US007556

PATIENT

DRUGS (2)
  1. VYVGART HYTRULO [Suspect]
     Active Substance: EFGARTIGIMOD ALFA\HYALURONIDASE-QVFC
     Indication: Myasthenia gravis
     Dosage: 1008 MG (1008 MG/11200 UNITS/5.6ML), 1/WEEK FOR 4 WEEKS THEN 5 WEEKS OFF, THEN REPEAT CYCLE
     Route: 058
     Dates: start: 202402
  2. VYVGART [Suspect]
     Active Substance: EFGARTIGIMOD ALFA-FCAB
     Indication: Product used for unknown indication
     Route: 042

REACTIONS (10)
  - Septic shock [Unknown]
  - Sepsis [Unknown]
  - Injection site pain [Unknown]
  - Fall [Recovering/Resolving]
  - Plasmapheresis [Unknown]
  - Catheter site pain [Unknown]
  - Catheter site erythema [Unknown]
  - Device related infection [Unknown]
  - Drug ineffective [Unknown]
  - Product administration error [Unknown]

NARRATIVE: CASE EVENT DATE: 20231230
